FAERS Safety Report 8909851 (Version 1)
Quarter: 2012Q4

REPORT INFORMATION
  Report Type: 
  Country: CO (occurrence: CO)
  Receive Date: 20121115
  Receipt Date: 20121115
  Transmission Date: 20130627
  Serious: Yes (Hospitalization, Other)
  Sender: FDA-Public Use
  Company Number: CO-PFIZER INC-2012159464

PATIENT
  Age: 2 Year
  Sex: Male

DRUGS (9)
  1. GENOTROPIN PEN [Suspect]
     Indication: HYPOPITUITARISM
     Dosage: 4.6 IU, 1x/day
     Route: 058
     Dates: start: 20100923, end: 201105
  2. GENOTROPIN PEN [Suspect]
     Indication: GROWTH HORMONE DEFICIENCY
     Dosage: 0.4 mg, 1x/day
     Route: 058
     Dates: start: 20120624, end: 20120626
  3. GENOTROPIN PEN [Suspect]
     Dosage: 0.4 mg, 1x/day
     Route: 058
     Dates: start: 20120731
  4. HYDROCORTISONE [Concomitant]
     Indication: HORMONE THERAPY
     Dosage: 10 mg/m2/dL
     Route: 048
  5. HYDROCORTISONE [Concomitant]
     Indication: HYPOPITUITARISM
  6. LEVOTHYROXINE [Concomitant]
     Indication: HYPOTHYROIDISM
     Dosage: 50 mcg/dL
     Route: 048
  7. LEVOTHYROXINE [Concomitant]
     Indication: HYPOPITUITARISM
  8. URSACOL [Concomitant]
     Indication: JAUNDICE CHOLESTATIC
     Dosage: 150 mg/dL
     Route: 048
  9. URSACOL [Concomitant]
     Indication: LIVER DISORDER

REACTIONS (2)
  - Injury associated with device [Recovered/Resolved]
  - Drug dispensing error [Recovered/Resolved]
